FAERS Safety Report 6255732-X (Version None)
Quarter: 2009Q3

REPORT INFORMATION
  Report Type: 
  Country: None (occurrence: None)
  Receive Date: 20090701
  Receipt Date: 20090622
  Transmission Date: 20100115
  Serious: Yes (Hospitalization)
  Sender: FDA-Public Use
  Company Number: 271549

PATIENT
  Age: 72 Year
  Sex: Male

DRUGS (8)
  1. CYTARABINE [Suspect]
     Indication: ACUTE MYELOID LEUKAEMIA
     Dosage: 20 MG/M2, ONCE EVERY 2 DAYS, SUBCUTANEOUS; 20 MG/M2 (ONCE EVERY 2 DAYS)
     Route: 058
     Dates: start: 20090401, end: 20090410
  2. CYTARABINE [Suspect]
     Indication: ACUTE MYELOID LEUKAEMIA
     Dosage: 20 MG/M2, ONCE EVERY 2 DAYS, SUBCUTANEOUS; 20 MG/M2 (ONCE EVERY 2 DAYS)
     Route: 058
     Dates: start: 20090504
  3. (ENALAPRIL) [Concomitant]
  4. PREDNISOLONE [Concomitant]
  5. OMEPRAZOLE [Concomitant]
  6. (POTASSIUM MAGNESIUM ASPARTATE) [Concomitant]
  7. (ETAMSILATE) [Concomitant]
  8. AMINOCAPROIC ACID [Concomitant]

REACTIONS (6)
  - ACUTE MYELOID LEUKAEMIA [None]
  - ANAEMIA [None]
  - ANGINA PECTORIS [None]
  - CONDITION AGGRAVATED [None]
  - CORONARY ARTERY DISEASE [None]
  - MALIGNANT NEOPLASM PROGRESSION [None]
